FAERS Safety Report 5404341-0 (Version None)
Quarter: 2007Q3

REPORT INFORMATION
  Report Type: 
  Country: None (occurrence: None)
  Receive Date: 20070711
  Receipt Date: 20060524
  Transmission Date: 20080115
  Serious: Yes (Other)
  Sender: FDA-Public Use
  Company Number: 246369

PATIENT
  Age: 54 Year
  Sex: Female
  Weight: 65.8 kg

DRUGS (11)
  1. ACTIVELLA [Suspect]
     Indication: MENOPAUSAL SYMPTOMS
     Dosage: 1 TAB
     Dates: start: 20010301, end: 20011201
  2. PREMPRO [Suspect]
     Indication: MENOPAUSAL SYMPTOMS
     Dosage: 5 MG
     Dates: start: 19940101, end: 20010101
  3. PREMARIN [Suspect]
     Indication: MENOPAUSAL SYMPTOMS
     Dosage: 1.25 MG
     Dates: start: 19970101, end: 20000101
  4. PROVERA [Suspect]
     Indication: MENOPAUSAL SYMPTOMS
     Dosage: 5 MG
     Dates: start: 19920101, end: 19930101
  5. CYCRIN [Suspect]
     Indication: MENOPAUSAL SYMPTOMS
  6. ESTRACE [Suspect]
     Indication: MENOPAUSAL SYMPTOMS
     Dosage: 2 MG
     Dates: start: 19930101, end: 19960101
  7. MEDROXYPROGESTERONE [Suspect]
     Indication: MENOPAUSAL SYMPTOMS
     Dosage: 5 MG
     Dates: start: 19920101, end: 19930101
  8. CLIMARA [Suspect]
     Dosage: 0.1 MG
     Dates: start: 19961001
  9. CELEBREX [Concomitant]
  10. EFFEXOR [Concomitant]
  11. VENLAFAXINE HCL [Concomitant]

REACTIONS (1)
  - BREAST CANCER [None]
